FAERS Safety Report 4485135-X (Version None)
Quarter: 2004Q4

REPORT INFORMATION
  Report Type: 
  Country: None (occurrence: None)
  Receive Date: 20041026
  Receipt Date: 20031114
  Transmission Date: 20050328
  Serious: No
  Sender: FDA-Public Use
  Company Number: US-BRISTOL-MYERS SQUIBB COMPANY-12436176

PATIENT
  Age: 62 Year
  Sex: Male

DRUGS (6)
  1. GLUCOPHAGE XR [Suspect]
     Indication: DIABETES MELLITUS
     Route: 048
  2. PREVACID [Concomitant]
  3. PROVENTIL [Concomitant]
  4. ATROVENT [Concomitant]
  5. ADVAIR DISKUS 100/50 [Concomitant]
  6. FLONASE [Concomitant]

REACTIONS (1)
  - BLOOD GLUCOSE INCREASED [None]
